FAERS Safety Report 8019387-6 (Version None)
Quarter: 2012Q1

REPORT INFORMATION
  Report Type: 
  Country: None (occurrence: None)
  Receive Date: 20120103
  Receipt Date: 20111227
  Transmission Date: 20120608
  Serious: Yes (Hospitalization)
  Sender: FDA-Public Use
  Company Number: PHHY2011FR113224

PATIENT
  Sex: Male

DRUGS (3)
  1. STALEVO 100 [Suspect]
     Dosage: 200MG/150 MG/ 37.5MG, 5 TIMES DAILY
     Route: 048
  2. STALEVO 100 [Suspect]
     Dosage: 200MG / 100MG /25 MG, ONE DOSE DAILY
     Route: 048
  3. MODOPAR [Concomitant]
     Dosage: 1 DF, UNK
     Route: 048

REACTIONS (18)
  - DEPRESSION [None]
  - DYSPHONIA [None]
  - AKINESIA [None]
  - EXTRAPYRAMIDAL DISORDER [None]
  - DYSPHAGIA [None]
  - VISUAL ACUITY REDUCED [None]
  - POOR QUALITY SLEEP [None]
  - SARCOPENIA [None]
  - POSTURE ABNORMAL [None]
  - DEPRESSED MOOD [None]
  - PERSECUTORY DELUSION [None]
  - COMMUNICATION DISORDER [None]
  - FALL [None]
  - SEXUAL DYSFUNCTION [None]
  - DECREASED APPETITE [None]
  - DISORIENTATION [None]
  - HALLUCINATION, VISUAL [None]
  - DYSARTHRIA [None]
